FAERS Safety Report 8490991-4 (Version None)
Quarter: 2012Q3

REPORT INFORMATION
  Report Type: 
  Country: None (occurrence: None)
  Receive Date: 20120706
  Receipt Date: 20120627
  Transmission Date: 20120928
  Serious: Yes (Hospitalization)
  Sender: FDA-Public Use
  Company Number: JP-ELI_LILLY_AND_COMPANY-JP201205005813

PATIENT
  Age: 60 Year
  Sex: Male

DRUGS (1)
  1. HUMULIN R [Suspect]
     Route: 058

REACTIONS (1)
  - WHITE BLOOD CELL COUNT DECREASED [None]
